FAERS Safety Report 6878553-3 (Version None)
Quarter: 2010Q3

REPORT INFORMATION
  Report Type: 
  Country: None (occurrence: None)
  Receive Date: 20100728
  Receipt Date: 20100716
  Transmission Date: 20110219
  Serious: Yes (Hospitalization)
  Sender: FDA-Public Use
  Company Number: A0789776A

PATIENT
  Age: 46 Year
  Sex: Male

DRUGS (8)
  1. AVANDIA [Suspect]
     Indication: DIABETES MELLITUS
     Dosage: 8MG PER DAY
     Route: 048
     Dates: start: 19990901, end: 20070101
  2. AMARYL [Concomitant]
  3. VIOXX [Concomitant]
  4. ZANTAC [Concomitant]
  5. NASACORT [Concomitant]
  6. OMNIHIST [Concomitant]
  7. CELEXA [Concomitant]
  8. DETROL LA [Concomitant]

REACTIONS (2)
  - MYOCARDIAL INFARCTION [None]
  - MYOCARDIAL ISCHAEMIA [None]
